FAERS Safety Report 9098645 (Version 2)
Quarter: 2013Q2

REPORT INFORMATION
  Report Type: Spontaneous
  Country: US (occurrence: US)
  Receive Date: 20130213
  Receipt Date: 20130526
  Transmission Date: 20140414
  Serious: No
  Sender: FDA-Public Use
  Company Number: US-ALLERGAN-1217263US

PATIENT
  Age: 78 Year
  Sex: Female

DRUGS (13)
  1. LASTACAFT [Suspect]
     Indication: BLEPHARITIS
     Dosage: 1 GTT, QD
     Dates: start: 20120618, end: 20121201
  2. LASTACAFT [Suspect]
     Dosage: 1 GTT, OU QD
     Route: 047
     Dates: start: 20121120, end: 20121121
  3. LASTACAFT [Suspect]
     Dosage: 1 GTT, SINGLE
     Route: 047
     Dates: start: 20121208, end: 20121209
  4. SYNTHROID [Concomitant]
     Indication: HYPOTHYROIDISM
     Dosage: 100 ?G, QD
     Route: 048
  5. AMBIEN [Concomitant]
     Indication: INSOMNIA
     Dosage: 5 MG, PRN
     Route: 048
  6. TRAMADOL [Concomitant]
     Indication: ARTHRITIS
     Dosage: 4 TABLETS, QD
     Route: 048
  7. LIDOCAINE [Concomitant]
     Indication: PRODUCT USED FOR UNKNOWN INDICATION
     Route: 061
  8. LOSARTAN [Concomitant]
     Indication: PRODUCT USED FOR UNKNOWN INDICATION
     Dosage: 50 MG PER ORAL
     Route: 048
  9. OXYCODONE W/PARACETAMOL [Concomitant]
     Indication: PRODUCT USED FOR UNKNOWN INDICATION
     Dosage: 10/325, PO
     Route: 048
  10. ALPRAZOLAM [Concomitant]
     Indication: PRODUCT USED FOR UNKNOWN INDICATION
     Dosage: 0.25, PO
     Route: 048
  11. TEMAZEPAM [Concomitant]
     Indication: PRODUCT USED FOR UNKNOWN INDICATION
     Dosage: 15 MG, PO
     Route: 048
  12. LORAZEPAM [Concomitant]
     Indication: PRODUCT USED FOR UNKNOWN INDICATION
     Dosage: 5/5, PO
     Route: 048
  13. VOLTAREN [Concomitant]
     Indication: PRODUCT USED FOR UNKNOWN INDICATION
     Dosage: 1%
     Route: 061

REACTIONS (4)
  - Nonspecific reaction [Recovered/Resolved]
  - Eyelid oedema [Recovered/Resolved]
  - Eye irritation [Recovered/Resolved]
  - Ocular hyperaemia [Recovered/Resolved]
